FAERS Safety Report 8952782 (Version 2)
Quarter: 2013Q4

REPORT INFORMATION
  Report Type: Spontaneous
  Country: GB (occurrence: GB)
  Receive Date: 20121204
  Receipt Date: 20131008
  Transmission Date: 20140711
  Serious: Yes (Disabling)
  Sender: FDA-Public Use
  Company Number: GB-ROCHE-1162698

PATIENT
  Age: 34 Year
  Sex: Male
  Weight: 73.02 kg

DRUGS (1)
  1. ROACCUTANE [Suspect]
     Indication: ACNE CONGLOBATA
     Route: 048
     Dates: start: 19920430, end: 19920531

REACTIONS (8)
  - Aggression [Recovered/Resolved with Sequelae]
  - Coeliac disease [Not Recovered/Not Resolved]
  - Dyspepsia [Recovered/Resolved with Sequelae]
  - Dry skin [Recovered/Resolved]
  - Irritability [Recovered/Resolved with Sequelae]
  - Epistaxis [Recovered/Resolved with Sequelae]
  - Personality change [Recovered/Resolved with Sequelae]
  - Anger [Recovered/Resolved]
